FAERS Safety Report 19507430 (Version 2)
Quarter: 2021Q3

REPORT INFORMATION
  Report Type: Spontaneous
  Country: US (occurrence: US)
  Receive Date: 20210708
  Receipt Date: 20210825
  Transmission Date: 20211014
  Serious: Yes (Other)
  Sender: FDA-Public Use
  Company Number: US-INTRA-CELLULAR THERAPIES, INC.-2021ICT00311

PATIENT
  Age: 68 Year
  Sex: Male
  Weight: 70.3 kg

DRUGS (11)
  1. LEVOFLOXACIN. [Concomitant]
     Active Substance: LEVOFLOXACIN
  2. PROTONIX [Concomitant]
     Active Substance: PANTOPRAZOLE SODIUM
  3. MULTIVITAMIN [Concomitant]
     Active Substance: VITAMINS
  4. AUSTEDO [Concomitant]
     Active Substance: DEUTETRABENAZINE
  5. ZOFRAN [Concomitant]
     Active Substance: ONDANSETRON HYDROCHLORIDE
  6. CAPLYTA [Suspect]
     Active Substance: LUMATEPERONE
     Dosage: 42 MG, 1X/DAY WITH FOOD
     Route: 048
     Dates: start: 20210608
  7. CAPLYTA [Suspect]
     Active Substance: LUMATEPERONE
     Indication: SCHIZOPHRENIA
     Dosage: 42 MG, 1X/DAY WITH FOOD
     Route: 048
     Dates: start: 20210514, end: 2021
  8. IRON SULFATE [Concomitant]
     Active Substance: FERROUS SULFATE ANHYDROUS
  9. PROMETHAZINE [Concomitant]
     Active Substance: PROMETHAZINE HYDROCHLORIDE
  10. VIMPAT [Concomitant]
     Active Substance: LACOSAMIDE
  11. CARAFATE [Concomitant]
     Active Substance: SUCRALFATE

REACTIONS (5)
  - Abnormal behaviour [Unknown]
  - Hyperphagia [Unknown]
  - Blood chloride decreased [Unknown]
  - Hyponatraemia [Unknown]
  - Urinary tract infection [Unknown]

NARRATIVE: CASE EVENT DATE: 2021
